FAERS Safety Report 4772383-4 (Version None)
Quarter: 2005Q3

REPORT INFORMATION
  Report Type: 
  Country: None (occurrence: None)
  Receive Date: 20050919
  Receipt Date: 20050222
  Transmission Date: 20060218
  Serious: No
  Sender: FDA-Public Use
  Company Number: US-BRISTOL-MYERS SQUIBB COMPANY-12870259

PATIENT
  Age: 30 Year
  Sex: Female
  Weight: 84 kg

DRUGS (1)
  1. KENALOG-40 [Suspect]
     Indication: INTERVERTEBRAL DISC PROTRUSION
     Dates: start: 20041116, end: 20041223

REACTIONS (10)
  - ASTHENIA [None]
  - DEPRESSION [None]
  - FATIGUE [None]
  - HYPERTRICHOSIS [None]
  - IRRITABILITY [None]
  - MUSCLE SPASMS [None]
  - NAUSEA [None]
  - SKIN STRIAE [None]
  - SWELLING [None]
  - WEIGHT INCREASED [None]
